FAERS Safety Report 4394069-0 (Version None)
Quarter: 2004Q3

REPORT INFORMATION
  Report Type: 
  Country: None (occurrence: None)
  Receive Date: 20040709
  Receipt Date: 20020910
  Transmission Date: 20050211
  Serious: Yes (Hospitalization, Other)
  Sender: FDA-Public Use
  Company Number: US-MERCK-0209USA01001

PATIENT
  Age: 68 Year
  Sex: Male
  Weight: 74 kg

DRUGS (1)
  1. VIOXX [Suspect]
     Indication: ARTHRALGIA
     Route: 048
     Dates: start: 20000223, end: 20000224

REACTIONS (15)
  - ABSCESS INTESTINAL [None]
  - ACUTE MYOCARDIAL INFARCTION [None]
  - ATHEROSCLEROSIS [None]
  - BUNDLE BRANCH BLOCK RIGHT [None]
  - CARDIOMYOPATHY [None]
  - CERVICOBRACHIAL SYNDROME [None]
  - CHRONIC OBSTRUCTIVE AIRWAYS DISEASE [None]
  - DIVERTICULAR PERFORATION [None]
  - DRUG HYPERSENSITIVITY [None]
  - MYELOPROLIFERATIVE DISORDER [None]
  - POLYCYTHAEMIA [None]
  - PROSTATIC SPECIFIC ANTIGEN INCREASED [None]
  - VENTRICULAR DYSFUNCTION [None]
  - VIRAL INFECTION [None]
  - VIRAL UPPER RESPIRATORY TRACT INFECTION [None]
